FAERS Safety Report 4361194-X (Version None)
Quarter: 2004Q2

REPORT INFORMATION
  Report Type: 
  Country: None (occurrence: None)
  Receive Date: 20040510
  Receipt Date: 20031204
  Transmission Date: 20050107
  Serious: Yes (Hospitalization)
  Sender: FDA-Public Use
  Company Number: TAP2003Q02869

PATIENT
  Age: 34 Year
  Sex: Female
  Weight: 53.5244 kg

DRUGS (5)
  1. LUPRON DEPOT-3 [Suspect]
     Indication: ENDOMETRIOSIS
     Dosage: 11.25 MG, 1 IN 3 M, INTRAMUSCULAR
     Route: 030
     Dates: start: 20031023, end: 20030430
  2. LUPRON DEPOT-3 [Suspect]
     Indication: PELVIC PAIN
     Dosage: 11.25 MG, 1 IN 3 M, INTRAMUSCULAR
     Route: 030
     Dates: start: 20031023, end: 20030430
  3. LUPRON DEPOT-3 [Suspect]
  4. LUPRON DEPOT-3 [Suspect]
  5. ORTHO TRI-CYCLEN (CILEST) [Concomitant]

REACTIONS (3)
  - DEPRESSION [None]
  - DRUG INEFFECTIVE [None]
  - OSTEOPENIA [None]
